FAERS Safety Report 9809682 (Version 1)
Quarter: 2014Q1

REPORT INFORMATION
  Report Type: Spontaneous
  Country: US (occurrence: US)
  Receive Date: 20140110
  Receipt Date: 20140110
  Transmission Date: 20141002
  Serious: Yes (Hospitalization, Disabling)
  Sender: FDA-Public Use
  Company Number: US-SANOFI-AVENTIS-A03200804918

PATIENT
  Sex: Male

DRUGS (1)
  1. CLOPIDOGREL BISULFATE [Suspect]
     Indication: PLATELET COUNT INCREASED
     Dosage: UNIT DOSE: 75 MG
     Route: 048
     Dates: start: 2000, end: 20051111

REACTIONS (1)
  - Haemorrhagic stroke [Not Recovered/Not Resolved]
